FAERS Safety Report 17142082 (Version 1)
Quarter: 2019Q4

REPORT INFORMATION
  Report Type: Spontaneous
  Country: FR (occurrence: FR)
  Receive Date: 20191211
  Receipt Date: 20191211
  Transmission Date: 20200122
  Serious: Yes (Other)
  Sender: FDA-Public Use
  Company Number: FR-GILEAD-2019-0441807

PATIENT
  Age: 79 Year
  Sex: Female
  Weight: 59 kg

DRUGS (10)
  1. NOVONORM [Concomitant]
     Active Substance: REPAGLINIDE
  2. TRIFLUCAN [Concomitant]
     Active Substance: FLUCONAZOLE
  3. VIREAD [Suspect]
     Active Substance: TENOFOVIR DISOPROXIL FUMARATE
     Indication: HEPATIC CIRRHOSIS
     Dosage: 245 MG, QOD
     Route: 048
     Dates: start: 2013, end: 20171026
  4. ADRIGYL [Concomitant]
     Active Substance: CHOLECALCIFEROL
  5. PANTOPRAZOLE [Concomitant]
     Active Substance: PANTOPRAZOLE
  6. DIFFU K [Concomitant]
     Active Substance: POTASSIUM CHLORIDE
  7. GALVUS [Concomitant]
     Active Substance: VILDAGLIPTIN
  8. AMOXICILLINE [AMOXICILLIN] [Concomitant]
     Active Substance: AMOXICILLIN
  9. SOTALOL. [Concomitant]
     Active Substance: SOTALOL
  10. EUPHYTOSE [Concomitant]
     Active Substance: HERBALS

REACTIONS (5)
  - Glycosuria [Recovered/Resolved]
  - Chronic kidney disease [Not Recovered/Not Resolved]
  - Hypouricaemia [Not Recovered/Not Resolved]
  - Hypophosphataemia [Not Recovered/Not Resolved]
  - Fanconi syndrome acquired [Not Recovered/Not Resolved]

NARRATIVE: CASE EVENT DATE: 201710
